FAERS Safety Report 23407293 (Version 1)
Quarter: 2024Q1

REPORT INFORMATION
  Report Type: Spontaneous
  Country: US (occurrence: US)
  Receive Date: 20240116
  Receipt Date: 20240116
  Transmission Date: 20240410
  Serious: Yes (Hospitalization, Other)
  Sender: FDA-Public Use
  Company Number: US-BRISTOL-MYERS SQUIBB COMPANY-2024-006393

PATIENT
  Age: 16 Year
  Sex: Female
  Weight: 42.64 kg

DRUGS (2)
  1. OPDIVO [Suspect]
     Active Substance: NIVOLUMAB
     Indication: Malignant melanoma
     Dosage: DOSE: 3 DOSES;  FREQUENCY: EVERY 2-3 WEEKS^
     Route: 041
     Dates: start: 2020, end: 2020
  2. YERVOY [Suspect]
     Active Substance: IPILIMUMAB
     Indication: Malignant melanoma
     Dosage: DOSE: 3 DOSES;  FREQUENCY: EVERY 2-3 WEEKS^
     Route: 041
     Dates: start: 2020, end: 2020

REACTIONS (2)
  - Hepatotoxicity [Recovered/Resolved]
  - Thyroid disorder [Unknown]

NARRATIVE: CASE EVENT DATE: 20200101
